FAERS Safety Report 17595998 (Version 2)
Quarter: 2020Q2

REPORT INFORMATION
  Report Type: Report from Study
  Country: None (occurrence: US)
  Receive Date: 20200329
  Receipt Date: 20200430
  Transmission Date: 20200713
  Serious: Yes (Hospitalization)
  Sender: FDA-Public Use
  Company Number: US-ABBVIE-20K-163-3341375-00

PATIENT
  Sex: Male

DRUGS (2)
  1. TIBSOVO [Concomitant]
     Active Substance: IVOSIDENIB
     Indication: ACUTE MYELOID LEUKAEMIA
     Route: 048
     Dates: start: 20190808
  2. VENCLEXTA [Suspect]
     Active Substance: VENETOCLAX
     Indication: ACUTE MYELOID LEUKAEMIA RECURRENT
     Route: 048
     Dates: start: 20200306

REACTIONS (20)
  - Protein total increased [Unknown]
  - Hyperhidrosis [Unknown]
  - White blood cell count decreased [Unknown]
  - Acute myeloid leukaemia recurrent [Unknown]
  - Asthenia [Unknown]
  - Malnutrition [Unknown]
  - Serum ferritin increased [Unknown]
  - Sepsis [Unknown]
  - Cytomegalovirus viraemia [Unknown]
  - Platelet count abnormal [Unknown]
  - Respiratory failure [Unknown]
  - Febrile neutropenia [Unknown]
  - Pneumonia [Unknown]
  - Heart rate increased [Unknown]
  - Gait inability [Unknown]
  - Diarrhoea [Unknown]
  - Graft versus host disease in lung [Unknown]
  - Pneumonia mycoplasmal [Unknown]
  - Haemoglobin abnormal [Unknown]
  - Acute respiratory distress syndrome [Unknown]

NARRATIVE: CASE EVENT DATE: 2020
